FAERS Safety Report 16959947 (Version 2)
Quarter: 2021Q1

REPORT INFORMATION
  Report Type: Other
  Country: BE (occurrence: BE)
  Receive Date: 20191025
  Receipt Date: 20210220
  Transmission Date: 20210419
  Serious: Yes (Other)
  Sender: FDA-Public Use
  Company Number: BE-ROCHE-2187302

PATIENT
  Age: 37 Year
  Sex: Male

DRUGS (6)
  1. PREDNISOLONE. [Concomitant]
     Active Substance: PREDNISOLONE
     Indication: VASCULITIS
     Route: 065
     Dates: start: 201905
  2. ROACTEMRA [Suspect]
     Active Substance: TOCILIZUMAB
     Dosage: RECEIVED TREATMENT OF TOCILIZUMAB ON 08/APR/2020, 11/MAR/2020, 12/FEB/2020 AND 15/JAN/2020
     Route: 042
     Dates: start: 201905
  3. METHOTREXATE. [Concomitant]
     Active Substance: METHOTREXATE
     Indication: VASCULITIS
     Route: 065
     Dates: start: 201805
  4. PREDNISOLONE. [Concomitant]
     Active Substance: PREDNISOLONE
     Route: 065
  5. ROACTEMRA [Suspect]
     Active Substance: TOCILIZUMAB
     Route: 042
     Dates: start: 2018
  6. ROACTEMRA [Suspect]
     Active Substance: TOCILIZUMAB
     Indication: VASCULITIS
     Dosage: 758 MG/ 4 WEEKS
     Route: 042
     Dates: start: 201805

REACTIONS (4)
  - Aortitis [Recovered/Resolved]
  - Off label use [Unknown]
  - Pleuropericarditis [Recovered/Resolved]
  - Intentional product use issue [Unknown]

NARRATIVE: CASE EVENT DATE: 201805
